FAERS Safety Report 5382349-1 (Version None)
Quarter: 2007Q3

REPORT INFORMATION
  Report Type: 
  Country: None (occurrence: None)
  Receive Date: 20070709
  Receipt Date: 20070628
  Transmission Date: 20080115
  Serious: Yes (Other)
  Sender: FDA-Public Use
  Company Number: US-SHR-US-2007-023113

PATIENT
  Age: 22 Year
  Sex: Male
  Weight: 82 kg

DRUGS (8)
  1. LEUKINE [Suspect]
     Indication: COLONY STIMULATING FACTOR THERAPY
     Dosage: 500MCG X10D AFTER TREATMENT
     Route: 058
     Dates: start: 20070403, end: 20070614
  2. REGLAN [Concomitant]
     Indication: NAUSEA
     Dosage: 40 MG, AS REQ'D
     Route: 048
     Dates: start: 20070410
  3. ALEXITOL SODIUM [Concomitant]
     Indication: PREMEDICATION
     Dosage: .25 MG, UNK
     Route: 042
  4. DECADRON                                /CAN/ [Concomitant]
     Indication: PREMEDICATION
     Dosage: 4 MG, UNK
     Route: 042
  5. LASIX [Concomitant]
     Indication: PREMEDICATION
     Dosage: 20 MG, UNK
     Route: 042
  6. CISPLATIN [Concomitant]
     Indication: TESTICULAR CANCER METASTATIC
     Dosage: 41MG Q21D,DAYS1-5
     Route: 042
  7. ETOPOSIDE [Concomitant]
     Indication: TESTICULAR CANCER METASTATIC
     Dosage: 206MGQ21D, DAYS 1-5
  8. BLEOMYCIN [Concomitant]
     Indication: TESTICULAR CANCER METASTATIC
     Dosage: 30U, DAYS 2-9-16
     Route: 042

REACTIONS (2)
  - CONVULSION [None]
  - VOMITING [None]
